FAERS Safety Report 5838185-2 (Version None)
Quarter: 2008Q3

REPORT INFORMATION
  Report Type: 
  Country: None (occurrence: None)
  Receive Date: 20080808
  Receipt Date: 20080729
  Transmission Date: 20090109
  Serious: Yes (Hospitalization)
  Sender: FDA-Public Use
  Company Number: US-JNJFOC-20080707308

PATIENT
  Sex: Female
  Weight: 56.7 kg

DRUGS (3)
  1. DURAGESIC-100 [Suspect]
     Indication: PAIN
     Dosage: 100UG/HR PATCH + 50UG/HR PATCH
     Route: 062
  2. PERCOCET [Concomitant]
     Indication: PAIN
     Route: 048
  3. SYNTHROID [Concomitant]
     Indication: THYROID DISORDER
     Route: 048

REACTIONS (6)
  - APPLICATION SITE IRRITATION [None]
  - DRUG ADMINISTERED AT INAPPROPRIATE SITE [None]
  - GOITRE [None]
  - INAPPROPRIATE SCHEDULE OF DRUG ADMINISTRATION [None]
  - STRESS [None]
  - WRONG TECHNIQUE IN DRUG USAGE PROCESS [None]
